FAERS Safety Report 9455286 (Version 1)
Quarter: 2013Q3

REPORT INFORMATION
  Report Type: Spontaneous
  Country: US (occurrence: US)
  Receive Date: 20130813
  Receipt Date: 20130813
  Transmission Date: 20140515
  Serious: No
  Sender: FDA-Public Use
  Company Number: US-JNJFOC-20130801792

PATIENT
  Sex: Female

DRUGS (2)
  1. DURAGESIC [Suspect]
     Indication: PRODUCT USED FOR UNKNOWN INDICATION
     Route: 062
     Dates: start: 2013
  2. OXYCODONE [Concomitant]
     Indication: BACK PAIN
     Route: 048

REACTIONS (4)
  - Wrong technique in drug usage process [Recovered/Resolved]
  - Rash [Unknown]
  - Product quality issue [Unknown]
  - Product quality issue [Recovered/Resolved]
